FAERS Safety Report 4931778-6 (Version None)
Quarter: 2006Q1

REPORT INFORMATION
  Report Type: 
  Country: None (occurrence: None)
  Receive Date: 20060303
  Receipt Date: 20060223
  Transmission Date: 20060701
  Serious: Yes (Hospitalization)
  Sender: FDA-Public Use
  Company Number: CH-AVENTIS-200611130EU

PATIENT
  Age: 84 Year
  Sex: Male

DRUGS (12)
  1. LASIX [Suspect]
     Indication: DRUG USE FOR UNKNOWN INDICATION
     Route: 048
  2. ALDACTONE [Suspect]
     Indication: DRUG USE FOR UNKNOWN INDICATION
     Route: 048
     Dates: end: 20060202
  3. ENATEC [Suspect]
     Indication: DRUG USE FOR UNKNOWN INDICATION
     Route: 048
     Dates: end: 20060202
  4. DILATREND [Concomitant]
     Route: 048
  5. SORBISTERIT-CALCIUM [Concomitant]
     Dosage: DOSE: 1 DOSAGE FORM
     Route: 048
  6. DUPHALAC [Concomitant]
     Route: 048
  7. SINTROM [Concomitant]
     Route: 048
  8. PANTOZOL [Concomitant]
     Route: 048
  9. TEMESTA [Concomitant]
     Route: 048
     Dates: end: 20060202
  10. CITALOPRAM ECOSOL [Concomitant]
     Route: 048
     Dates: end: 20060202
  11. TENORMIN [Concomitant]
     Route: 048
     Dates: end: 20060202
  12. AERIUS [Concomitant]
     Dosage: DOSE: 1 DOSAGE FORM
     Route: 048
     Dates: end: 20060202

REACTIONS (4)
  - ASTHENIA [None]
  - FALL [None]
  - HYPERKALAEMIA [None]
  - RENAL FAILURE [None]
